FAERS Safety Report 25949168 (Version 1)
Quarter: 2025Q4

REPORT INFORMATION
  Report Type: Spontaneous
  Country: GB (occurrence: GB)
  Receive Date: 20251022
  Receipt Date: 20251022
  Transmission Date: 20260117
  Serious: Yes (Other)
  Sender: NOVO NORDISK
  Company Number: None

PATIENT
  Age: 57 Year
  Sex: Female
  Weight: 92 kg

DRUGS (1)
  1. WEGOVY [Suspect]
     Active Substance: SEMAGLUTIDE
     Indication: Weight control
     Dosage: 0.5MG
     Dates: end: 20251009

REACTIONS (1)
  - Cholecystectomy [Not Recovered/Not Resolved]

NARRATIVE: CASE EVENT DATE: 20251009
